FAERS Safety Report 5456268-6 (Version None)
Quarter: 2007Q3

REPORT INFORMATION
  Report Type: 
  Country: None (occurrence: None)
  Receive Date: 20070918
  Receipt Date: 20070330
  Transmission Date: 20080115
  Serious: Yes (Other)
  Sender: FDA-Public Use
  Company Number: US-ASTRAZENECA-2006UW23509

PATIENT
  Sex: Male
  Weight: 136.4 kg

DRUGS (5)
  1. SEROQUEL [Suspect]
     Indication: PSYCHOTIC DISORDER
     Route: 048
  2. ABILIFY [Concomitant]
  3. CLOZARIL [Concomitant]
  4. RISPERDAL [Concomitant]
  5. ZYPREXA [Concomitant]

REACTIONS (2)
  - PANCREATITIS [None]
  - TYPE 2 DIABETES MELLITUS [None]
